FAERS Safety Report 5106403-4 (Version None)
Quarter: 2006Q3

REPORT INFORMATION
  Report Type: 
  Country: None (occurrence: None)
  Receive Date: 20060918
  Receipt Date: 20050809
  Transmission Date: 20061208
  Serious: Yes (Hospitalization)
  Sender: FDA-Public Use
  Company Number: JP-AVENTIS-200611995JP

PATIENT
  Age: 75 Year
  Sex: Female
  Weight: 45 kg

DRUGS (11)
  1. ARAVA [Suspect]
     Indication: RHEUMATOID ARTHRITIS
     Route: 048
     Dates: start: 20050228, end: 20050408
  2. ARAVA [Suspect]
     Route: 048
     Dates: start: 20050422, end: 20060627
  3. LOXONIN [Suspect]
     Indication: PAIN
     Route: 048
     Dates: end: 20060627
  4. LOXONIN [Suspect]
     Indication: INFLAMMATION
     Route: 048
     Dates: end: 20060627
  5. CYTOTEC [Suspect]
     Indication: PROPHYLAXIS AGAINST GASTROINTESTINAL ULCER
     Route: 048
     Dates: end: 20060627
  6. LENDORMIN [Suspect]
     Indication: INSOMNIA
     Route: 048
     Dates: end: 20060627
  7. DEPAS [Suspect]
     Indication: INSOMNIA
     Route: 048
     Dates: start: 20060113, end: 20060627
  8. BONALON [Suspect]
     Indication: OSTEOPOROSIS
     Route: 048
     Dates: start: 20060113, end: 20060627
  9. FERROMIA [Suspect]
     Indication: ANAEMIA
     Route: 048
     Dates: end: 20060627
  10. AMLODIN [Suspect]
     Indication: HYPERTENSION
     Route: 048
     Dates: end: 20060627
  11. BENET [Concomitant]

REACTIONS (7)
  - ALANINE AMINOTRANSFERASE INCREASED [None]
  - ASPARTATE AMINOTRANSFERASE INCREASED [None]
  - BLOOD ALKALINE PHOSPHATASE INCREASED [None]
  - GAMMA-GLUTAMYLTRANSFERASE INCREASED [None]
  - GENERAL PHYSICAL HEALTH DETERIORATION [None]
  - HEPATIC FUNCTION ABNORMAL [None]
  - RASH [None]
